FAERS Safety Report 24080853 (Version 1)
Quarter: 2024Q3

REPORT INFORMATION
  Report Type: Spontaneous
  Country: UA (occurrence: UA)
  Receive Date: 20240711
  Receipt Date: 20240711
  Transmission Date: 20241016
  Serious: Yes (Other)
  Sender: BRISTOL MYERS SQUIBB
  Company Number: UA-BRISTOL-MYERS SQUIBB COMPANY-2024-109246

PATIENT
  Sex: Male
  Weight: 140 kg

DRUGS (1)
  1. ELIQUIS [Suspect]
     Active Substance: APIXABAN
     Indication: Product used for unknown indication

REACTIONS (8)
  - Atrial fibrillation [Unknown]
  - Ventricular extrasystoles [Unknown]
  - Bundle branch block left [Unknown]
  - Conduction disorder [Unknown]
  - Hypertension [Unknown]
  - Heart failure with reduced ejection fraction [Unknown]
  - Chronic kidney disease [Unknown]
  - Cardiomyopathy [Unknown]
